FAERS Safety Report 8997737 (Version 1)
Quarter: 2013Q1

REPORT INFORMATION
  Report Type: Spontaneous
  Country: FR (occurrence: FR)
  Receive Date: 20130104
  Receipt Date: 20130104
  Transmission Date: 20140127
  Serious: Yes (Other)
  Sender: FDA-Public Use
  Company Number: FR-ROCHE-1176856

PATIENT
  Age: 45 Year
  Sex: Male

DRUGS (3)
  1. AVASTIN [Suspect]
     Indication: LUNG ADENOCARCINOMA
     Route: 042
     Dates: start: 20111216, end: 20120904
  2. CISPLATIN [Concomitant]
     Indication: LUNG ADENOCARCINOMA
     Route: 042
     Dates: start: 20111216, end: 20120430
  3. ALIMTA [Concomitant]
     Indication: LUNG ADENOCARCINOMA
     Route: 042
     Dates: start: 20111216, end: 20120430

REACTIONS (1)
  - Vertigo [Not Recovered/Not Resolved]
